FAERS Safety Report 6678877-9 (Version None)
Quarter: 2010Q2

REPORT INFORMATION
  Report Type: 
  Country: None (occurrence: None)
  Receive Date: 20100413
  Receipt Date: 20100406
  Transmission Date: 20101027
  Serious: Yes (Hospitalization)
  Sender: FDA-Public Use
  Company Number: US-BRISTOL-MYERS SQUIBB COMPANY-15051709

PATIENT
  Age: 73 Year
  Sex: Male
  Weight: 59 kg

DRUGS (17)
  1. PACLITAXEL [Suspect]
     Indication: NON-SMALL CELL LUNG CANCER
     Dosage: LAST DOSE: 07JAN2010
     Route: 042
     Dates: start: 20091218
  2. CARBOPLATIN [Suspect]
     Indication: NON-SMALL CELL LUNG CANCER
     Dosage: 1DF = 6AUC LAST DOSE: 07JAN2010
     Route: 042
     Dates: start: 20091218
  3. BEVACIZUMAB [Suspect]
     Indication: NON-SMALL CELL LUNG CANCER
     Dosage: LAST DOSE: 07JAN2010
     Route: 042
     Dates: start: 20091218
  4. ERLOTINIB [Concomitant]
     Dates: start: 20100128, end: 20100217
  5. ALLEGRA [Concomitant]
  6. CALCIUM + VITAMIN D [Concomitant]
  7. CARAFATE [Concomitant]
  8. FOLIC ACID [Concomitant]
     Dates: start: 20091211
  9. LISINOPRIL [Concomitant]
  10. MAGNESIUM OXIDE [Concomitant]
     Dates: start: 20091208
  11. MULTI-VITAMIN [Concomitant]
  12. NORVASC [Concomitant]
  13. OMEPRAZOLE [Concomitant]
     Dates: start: 20090928
  14. POTASSIUM CHLORIDE [Concomitant]
  15. ZETIA [Concomitant]
  16. METOPROLOL TARTRATE [Concomitant]
     Dates: start: 20100116
  17. AMILORIDE HYDROCHLORIDE [Concomitant]

REACTIONS (5)
  - ANAEMIA [None]
  - HYPERKALAEMIA [None]
  - HYPOMAGNESAEMIA [None]
  - HYPONATRAEMIA [None]
  - THROMBOCYTOPENIA [None]
